FAERS Safety Report 26002000 (Version 1)
Quarter: 2025Q4

REPORT INFORMATION
  Report Type: Spontaneous
  Country: US (occurrence: US)
  Receive Date: 20251105
  Receipt Date: 20251105
  Transmission Date: 20260118
  Serious: Yes (Other)
  Sender: APELLIS PHARMACEUTICALS
  Company Number: US-APELLIS-2025-APL-0000845

PATIENT

DRUGS (1)
  1. SYFOVRE [Suspect]
     Active Substance: PEGCETACOPLAN
     Indication: Product used for unknown indication
     Dosage: UNKNOWN
     Route: 031

REACTIONS (7)
  - Retinal vasculitis [Recovering/Resolving]
  - Anterior chamber inflammation [Recovering/Resolving]
  - Retinal haemorrhage [Not Recovered/Not Resolved]
  - Eye inflammation [Unknown]
  - Corneal oedema [Recovering/Resolving]
  - Visual impairment [Recovering/Resolving]
  - Product contamination physical [Unknown]
